FAERS Safety Report 16794108 (Version 2)
Quarter: 2019Q3

REPORT INFORMATION
  Report Type: Report from Study
  Country: BE (occurrence: BE)
  Receive Date: 20190911
  Receipt Date: 20190920
  Transmission Date: 20191005
  Serious: Yes (Death, Hospitalization, Other)
  Sender: FDA-Public Use
  Company Number: BE-MYLANLABS-2019M1083798

PATIENT
  Sex: Female
  Weight: 65 kg

DRUGS (24)
  1. JAKAVI [Suspect]
     Active Substance: RUXOLITINIB
     Indication: GRAFT VERSUS HOST DISEASE
     Dosage: UNK
     Route: 065
     Dates: start: 20170313
  2. ZANIDIP [Concomitant]
     Active Substance: LERCANIDIPINE HYDROCHLORIDE
     Indication: PRODUCT USED FOR UNKNOWN INDICATION
     Dosage: 0.5 MG, QD
     Route: 065
  3. D-CURE [Concomitant]
     Active Substance: CHOLECALCIFEROL
     Indication: PRODUCT USED FOR UNKNOWN INDICATION
     Dosage: 2500 IU/ML, 1 AMPULE EVERY 7 DAYS
     Route: 065
  4. ISOTEN [Concomitant]
     Active Substance: BISOPROLOL FUMARATE
     Indication: PRODUCT USED FOR UNKNOWN INDICATION
     Dosage: 5 MG, QD
     Route: 065
  5. CYCLOSERINE. [Concomitant]
     Active Substance: CYCLOSERINE
     Indication: PRODUCT USED FOR UNKNOWN INDICATION
     Dosage: 1 DRP, BID (0.05%)
     Route: 065
  6. DAFALGAN [Concomitant]
     Active Substance: ACETAMINOPHEN
     Indication: PAIN
     Dosage: UNK
     Route: 065
  7. EFEXOR-EXEL [Concomitant]
     Active Substance: VENLAFAXINE HYDROCHLORIDE
     Indication: PRODUCT USED FOR UNKNOWN INDICATION
     Dosage: 75 MG, QD
     Route: 065
  8. XARELTO [Concomitant]
     Active Substance: RIVAROXABAN
     Indication: THROMBOSIS
     Dosage: UNK
  9. TRADONAL [Suspect]
     Active Substance: TRAMADOL HYDROCHLORIDE
     Dosage: 50 MG, 1 IF NECESSARY
     Route: 065
  10. MEDROL [Concomitant]
     Active Substance: METHYLPREDNISOLONE
     Dosage: 16 MILLIGRAM, QD
  11. CALCIUM CARBONATE. [Concomitant]
     Active Substance: CALCIUM CARBONATE
     Indication: PRODUCT USED FOR UNKNOWN INDICATION
     Dosage: 1 G, QD
     Route: 065
  12. JAKAVI [Suspect]
     Active Substance: RUXOLITINIB
     Dosage: 10 MG, BID
     Route: 065
     Dates: start: 201709
  13. PRAREDUCT [Concomitant]
     Active Substance: PRAVASTATIN SODIUM
     Indication: BLOOD CHOLESTEROL INCREASED
     Dosage: UNK
     Route: 065
  14. PRAREDUCT [Concomitant]
     Active Substance: PRAVASTATIN SODIUM
     Indication: DYSLIPIDAEMIA
     Dosage: UNK
     Route: 065
  15. URSOFALK [Concomitant]
     Active Substance: URSODIOL
     Indication: PRODUCT USED FOR UNKNOWN INDICATION
     Dosage: 250 MG, BID
     Route: 065
  16. LORAZEPAM EG [Concomitant]
     Indication: PRODUCT USED FOR UNKNOWN INDICATION
     Dosage: 2.5 MG, QD
     Route: 065
  17. TRADONAL [Suspect]
     Active Substance: TRAMADOL HYDROCHLORIDE
     Indication: PAIN
     Dosage: 150 MG, BID
     Route: 065
  18. JAKAVI [Suspect]
     Active Substance: RUXOLITINIB
     Dosage: 20 MILLIGRAM
     Route: 048
     Dates: start: 20170412, end: 201709
  19. L THYROXINE [Concomitant]
     Active Substance: LEVOTHYROXINE SODIUM
     Indication: PRODUCT USED FOR UNKNOWN INDICATION
     Dosage: 25 UG, QD
     Route: 065
  20. NEXIAM                             /01479303/ [Concomitant]
     Indication: PRODUCT USED FOR UNKNOWN INDICATION
     Dosage: 40 MG, QD
     Route: 065
  21. XARELTO [Concomitant]
     Active Substance: RIVAROXABAN
     Indication: PULMONARY EMBOLISM
     Dosage: UNK
     Route: 065
  22. PROGRAFT [Concomitant]
     Active Substance: TACROLIMUS
     Indication: PRODUCT USED FOR UNKNOWN INDICATION
     Dosage: 0.5 MG, QD
     Route: 065
  23. MEDROL [Concomitant]
     Active Substance: METHYLPREDNISOLONE
     Indication: PRODUCT USED FOR UNKNOWN INDICATION
     Dosage: 0.5 DF 8/16 MG),QD
     Route: 065
  24. SINTROM [Concomitant]
     Active Substance: ACENOCOUMAROL
     Indication: THROMBOSIS
     Dosage: UNK
     Route: 065

REACTIONS (24)
  - Pneumonia klebsiella [Fatal]
  - Bronchopulmonary aspergillosis [Recovering/Resolving]
  - Spinal fracture [Unknown]
  - Acute respiratory failure [Fatal]
  - Chronic kidney disease [Not Recovered/Not Resolved]
  - Colitis [Unknown]
  - Erythroblast count increased [Unknown]
  - Splenic infarction [Unknown]
  - Dyspnoea [Recovering/Resolving]
  - Stenotrophomonas infection [Unknown]
  - Glomerular filtration rate decreased [Unknown]
  - Renal impairment [Not Recovered/Not Resolved]
  - Oedema peripheral [Unknown]
  - Hypogammaglobulinaemia [Unknown]
  - Bacteraemia [Unknown]
  - Haemoglobin decreased [Unknown]
  - Osteonecrosis [Unknown]
  - General physical health deterioration [Not Recovered/Not Resolved]
  - Pancreatitis [Unknown]
  - Cytomegalovirus infection [Not Recovered/Not Resolved]
  - Alanine aminotransferase decreased [Unknown]
  - Acute kidney injury [Fatal]
  - Cough [Recovering/Resolving]
  - Altered state of consciousness [Not Recovered/Not Resolved]
